FAERS Safety Report 24670536 (Version 3)
Quarter: 2024Q4

REPORT INFORMATION
  Report Type: Spontaneous
  Country: US (occurrence: US)
  Receive Date: 20241127
  Receipt Date: 20241217
  Transmission Date: 20250114
  Serious: No
  Sender: PFIZER
  Company Number: US-PFIZER INC-202400308888

PATIENT
  Age: 69 Year
  Sex: Female

DRUGS (1)
  1. EUCRISA [Suspect]
     Active Substance: CRISABOROLE
     Indication: Rash
     Dosage: UNK, AS NEEDED [2%) 60G TUBE, APPLY TO RASH AROUND MOUTH BID PRN FLARE]

REACTIONS (3)
  - Application site burn [Unknown]
  - Drug effective for unapproved indication [Unknown]
  - Off label use [Unknown]
